FAERS Safety Report 24398043 (Version 1)
Quarter: 2024Q4

REPORT INFORMATION
  Report Type: Spontaneous
  Country: FR (occurrence: FR)
  Receive Date: 20241004
  Receipt Date: 20241004
  Transmission Date: 20250114
  Serious: Yes (Hospitalization)
  Sender: SANDOZ
  Company Number: None

PATIENT
  Age: 18 Year
  Sex: Male

DRUGS (4)
  1. ALPRAZOLAM [Suspect]
     Active Substance: ALPRAZOLAM
     Indication: Product used for unknown indication
     Dosage: 3.000MG QD START DATE: ??-???-2024
     Route: 048
     Dates: end: 20240912
  2. CANNABIS SATIVA SUBSP. INDICA TOP [Suspect]
     Active Substance: CANNABIS SATIVA SUBSP. INDICA TOP
     Indication: Product used for unknown indication
     Dosage: 5 JOINTS PAR JOUR DE ^DRY^ OU ^STATIC^DOS? ? 40% DE THC, START DATE:??-???-2022
     Route: 055
  3. ACETAMINOPHEN\OPIUM [Suspect]
     Active Substance: ACETAMINOPHEN\OPIUM
     Indication: Product used for unknown indication
     Dosage: 4/ JOUR EN ALTERNANCE AVEC OPIUM FUM? (?QUIVALENT ? 100MG D^OPIUM/JOUR) (IZALGI 500 MG/25 MG, G?LULE
     Route: 048
     Dates: end: 20240912
  4. OPIUM [Suspect]
     Active Substance: OPIUM
     Indication: Product used for unknown indication
     Dosage: 0.300G QD START DATE: ??-AUG-2024
     Route: 055
     Dates: end: 20240912

REACTIONS (4)
  - Substance use disorder [Recovering/Resolving]
  - Suicidal ideation [Recovered/Resolved]
  - Drug use disorder [Recovering/Resolving]
  - Hallucination, auditory [Recovering/Resolving]

NARRATIVE: CASE EVENT DATE: 20220101
